FAERS Safety Report 5317264-2 (Version None)
Quarter: 2007Q2

REPORT INFORMATION
  Report Type: 
  Country: None (occurrence: None)
  Receive Date: 20070504
  Receipt Date: 20070424
  Transmission Date: 20071010
  Serious: Yes (Death)
  Sender: FDA-Public Use
  Company Number: JP-PFIZER INC-2007032961

PATIENT
  Age: 92 Year
  Sex: Male

DRUGS (2)
  1. ZYVOX [Suspect]
     Indication: PNEUMONIA STAPHYLOCOCCAL
     Dates: start: 20070201, end: 20070201
  2. VANCOMYCIN [Concomitant]

REACTIONS (1)
  - DEATH [None]
